FAERS Safety Report 10424990 (Version 1)
Quarter: 2014Q3

REPORT INFORMATION
  Report Type: Spontaneous
  Country: US (occurrence: None)
  Receive Date: 20140725
  Receipt Date: 20140725
  Transmission Date: 20150326
  Serious: No
  Sender: FDA-Public Use
  Company Number: AP356-00593-SPO-US

PATIENT
  Age: 77 Year
  Sex: Male
  Weight: 100 kg

DRUGS (6)
  1. LASIX [Concomitant]
     Active Substance: FUROSEMIDE
  2. FINASTERIDE (FINASTERIDE) [Concomitant]
     Active Substance: FINASTERIDE
  3. METOPROLOL (METOPROLOL) [Concomitant]
     Active Substance: METOPROLOL
  4. LISINOPRIL (LISINOPRIL) [Concomitant]
     Active Substance: LISINOPRIL
  5. BELVIQ [Suspect]
     Active Substance: LORCASERIN HYDROCHLORIDE
     Indication: WEIGHT DECREASED
     Route: 048
     Dates: start: 20140305, end: 20140313
  6. ASPIRIN (ACETYLSALICYLIC ACID) [Concomitant]
     Active Substance: ASPIRIN

REACTIONS (6)
  - Pruritus [None]
  - Dizziness postural [None]
  - Lethargy [None]
  - Abdominal discomfort [None]
  - Dyspnoea [None]
  - Fall [None]

NARRATIVE: CASE EVENT DATE: 20140310
